FAERS Safety Report 9137493 (Version 1)
Quarter: 2013Q1

REPORT INFORMATION
  Report Type: Spontaneous
  Country: US (occurrence: US)
  Receive Date: 20130304
  Receipt Date: 20130304
  Transmission Date: 20140127
  Serious: Yes (Other)
  Sender: FDA-Public Use
  Company Number: US-PFIZER INC-2013073829

PATIENT
  Age: 74 Year
  Sex: Female
  Weight: 79.37 kg

DRUGS (8)
  1. LYRICA [Suspect]
     Indication: PAIN
     Dosage: 75 MG, 3X/DAY
     Route: 048
     Dates: start: 2009
  2. LYRICA [Suspect]
     Indication: BURNING SENSATION
  3. LYRICA [Suspect]
     Indication: HYPOAESTHESIA
  4. ATENOLOL [Concomitant]
     Indication: HYPERTENSION
     Dosage: 50 MG, UNK
  5. DOXEPIN [Concomitant]
     Indication: DEPRESSION
     Dosage: 75 MG, 1X/DAY
  6. PAXIL [Concomitant]
     Indication: DEPRESSION
     Dosage: 20 MG, 1X/DAY
  7. ADVAIR DISKUS [Concomitant]
     Indication: ASTHMA
     Dosage: UNK
  8. ALBUTEROL [Concomitant]
     Indication: ASTHMA
     Dosage: UNK, AS NEEDED

REACTIONS (7)
  - Arthropathy [Unknown]
  - Urinary tract infection [Unknown]
  - Incontinence [Unknown]
  - Cataract [Unknown]
  - Plantar fasciitis [Unknown]
  - Neuroma [Unknown]
  - Bunion [Unknown]
